FAERS Safety Report 12346080 (Version 1)
Quarter: 2016Q2

REPORT INFORMATION
  Report Type: Spontaneous
  Country: US (occurrence: None)
  Receive Date: 20160506
  Receipt Date: 20160506
  Transmission Date: 20160815
  Serious: No
  Sender: FDA-Public Use
  Company Number: None

PATIENT
  Sex: Female

DRUGS (1)
  1. CYCLOBENZAPRINE, 10 MG [Suspect]
     Active Substance: CYCLOBENZAPRINE
     Indication: MUSCLE SPASMS

REACTIONS (6)
  - Condition aggravated [None]
  - Hypersomnia [None]
  - Muscle spasms [None]
  - Medical device monitoring error [None]
  - Drug ineffective [None]
  - Fatigue [None]
